FAERS Safety Report 4654797-6 (Version None)
Quarter: 2005Q2

REPORT INFORMATION
  Report Type: 
  Country: None (occurrence: None)
  Receive Date: 20050506
  Receipt Date: 20050427
  Transmission Date: 20051028
  Serious: Yes (Hospitalization)
  Sender: FDA-Public Use
  Company Number: US-ROCHE-403392

PATIENT
  Age: 15 Year
  Sex: Male
  Weight: 63.5 kg

DRUGS (1)
  1. ACCUTANE [Suspect]
     Route: 048
     Dates: start: 20030515, end: 20040615

REACTIONS (5)
  - BODY TEMPERATURE INCREASED [None]
  - DEHYDRATION [None]
  - DYSPHAGIA [None]
  - LETHARGY [None]
  - RED BLOOD CELL SEDIMENTATION RATE INCREASED [None]
